FAERS Safety Report 9880538 (Version 1)
Quarter: 2014Q1

REPORT INFORMATION
  Report Type: Spontaneous
  Country: US (occurrence: US)
  Receive Date: 20140207
  Receipt Date: 20140207
  Transmission Date: 20141002
  Serious: Yes (Hospitalization, Other)
  Sender: FDA-Public Use
  Company Number: US-JNJFOC-20140118090

PATIENT
  Sex: Male

DRUGS (3)
  1. HALDOL [Suspect]
     Indication: DEMENTIA ALZHEIMER^S TYPE
     Route: 065
     Dates: start: 2006, end: 2006
  2. MEMANTINE HYDROCHLORIDE [Suspect]
     Indication: DEMENTIA ALZHEIMER^S TYPE
     Dosage: 20MG (10MG, TWICE IN A DAY)
     Route: 065
     Dates: start: 2006, end: 2011
  3. LOSARTAN [Concomitant]
     Indication: HYPERTENSION
     Route: 065

REACTIONS (4)
  - Brain death [Not Recovered/Not Resolved]
  - Mass [Unknown]
  - Lethargy [Unknown]
  - Dementia Alzheimer^s type [Not Recovered/Not Resolved]
